FAERS Safety Report 9820185 (Version 1)
Quarter: 2013Q4

REPORT INFORMATION
  Report Type: Spontaneous
  Country: US (occurrence: None)
  Receive Date: 20131223
  Receipt Date: 20131223
  Transmission Date: 20140711
  Serious: No
  Sender: FDA-Public Use
  Company Number: 220879

PATIENT
  Age: 65 Year
  Sex: Female

DRUGS (5)
  1. PICATO [Suspect]
     Indication: ACTINIC KERATOSIS
     Route: 061
     Dates: start: 20130307
  2. DIOVAN (VALSARTAN) [Concomitant]
  3. ZOCOR (SIMVASTATIN) [Concomitant]
  4. SYNTHROID (LEVOTHYROXINE SODIUM) [Concomitant]
  5. OVER THE COUNTER ALLERGY PILL (ALLERGY MEDICATION) [Concomitant]

REACTIONS (2)
  - Application site erythema [None]
  - Application site vesicles [None]
